FAERS Safety Report 14377175 (Version 1)
Quarter: 2018Q1

REPORT INFORMATION
  Report Type: Spontaneous
  Country: US (occurrence: US)
  Receive Date: 20180110
  Receipt Date: 20180110
  Transmission Date: 20180509
  Serious: Yes (Life-Threatening, Other)
  Sender: FDA-Public Use
  Company Number: None

PATIENT
  Age: 24 Year
  Sex: Male
  Weight: 103.5 kg

DRUGS (1)
  1. EXTRA STRENGTH PAIN RELIEF PM [Suspect]
     Active Substance: ACETAMINOPHEN\DIPHENHYDRAMINE HYDROCHLORIDE
     Indication: SLEEP DISORDER
     Dosage: QUANTITY:100 TABLET(S); AT BEDTIME?
     Route: 048

REACTIONS (3)
  - Hepatic cirrhosis [None]
  - Incorrect dose administered [None]
  - Product label issue [None]

NARRATIVE: CASE EVENT DATE: 20180102
